FAERS Safety Report 17282939 (Version 1)
Quarter: 2020Q1

REPORT INFORMATION
  Report Type: Spontaneous
  Country: US (occurrence: US)
  Receive Date: 20200117
  Receipt Date: 20200117
  Transmission Date: 20200409
  Serious: Yes (Hospitalization)
  Sender: FDA-Public Use
  Company Number: US-ASTRAZENECA-2020SE06661

PATIENT
  Sex: Female

DRUGS (2)
  1. SYNAGIS [Suspect]
     Active Substance: PALIVIZUMAB
     Indication: PULMONARY VALVE STENOSIS
     Dosage: 100MG/ML MONTHLY
     Route: 030
     Dates: start: 20190130
  2. SYNAGIS [Suspect]
     Active Substance: PALIVIZUMAB
     Indication: ATRIOVENTRICULAR SEPTAL DEFECT
     Dosage: 100MG/ML MONTHLY
     Route: 030
     Dates: start: 20190130

REACTIONS (1)
  - Respiratory syncytial virus infection [Recovered/Resolved]

NARRATIVE: CASE EVENT DATE: 20191218
